FAERS Safety Report 11009975 (Version 8)
Quarter: 2019Q1

REPORT INFORMATION
  Report Type: Report from Study
  Country: None (occurrence: AU)
  Receive Date: 20150410
  Receipt Date: 20190328
  Transmission Date: 20190417
  Serious: Yes (Hospitalization, Other)
  Sender: FDA-Public Use
  Company Number: AU-ABBVIE-15K-008-1372871-00

PATIENT
  Age: 64 Year
  Sex: Male
  Weight: 120 kg

DRUGS (7)
  1. FOLIC ACID. [Concomitant]
     Active Substance: FOLIC ACID
     Indication: PRODUCT USED FOR UNKNOWN INDICATION
  2. HUMIRA [Suspect]
     Active Substance: ADALIMUMAB
     Indication: CROHN^S DISEASE
     Route: 058
     Dates: start: 201102, end: 20140521
  3. HUMIRA [Suspect]
     Active Substance: ADALIMUMAB
     Route: 058
     Dates: start: 201503
  4. INFLIXIMAB [Suspect]
     Active Substance: INFLIXIMAB
     Indication: CROHN^S DISEASE
     Route: 042
     Dates: start: 20141218, end: 20150129
  5. INFLIXIMAB [Suspect]
     Active Substance: INFLIXIMAB
     Indication: INTESTINAL FISTULA
  6. METHOTREXATE. [Concomitant]
     Active Substance: METHOTREXATE
     Indication: CROHN^S DISEASE
     Route: 058
     Dates: start: 20141112
  7. METHOTREXATE. [Concomitant]
     Active Substance: METHOTREXATE
     Route: 048

REACTIONS (9)
  - Anal fistula [Recovering/Resolving]
  - Therapy non-responder [Unknown]
  - Infusion related reaction [Recovered/Resolved]
  - Drug level decreased [Unknown]
  - Proctitis [Unknown]
  - Pain [Not Recovered/Not Resolved]
  - Infusion related reaction [Unknown]
  - Sepsis [Unknown]
  - Fistula discharge [Unknown]

NARRATIVE: CASE EVENT DATE: 201405
